FAERS Safety Report 21795122 (Version 1)
Quarter: 2022Q4

REPORT INFORMATION
  Report Type: Spontaneous
  Country: AT (occurrence: AT)
  Receive Date: 20221229
  Receipt Date: 20221229
  Transmission Date: 20230113
  Serious: Yes (Other)
  Sender: FDA-Public Use
  Company Number: AT-009507513-2212AUT010202

PATIENT
  Age: 62 Year
  Sex: Female

DRUGS (1)
  1. PEMBROLIZUMAB [Suspect]
     Active Substance: PEMBROLIZUMAB
     Indication: Thymoma malignant recurrent
     Dosage: UNK

REACTIONS (5)
  - Ophthalmoplegia [Recovering/Resolving]
  - Neuromyopathy [Unknown]
  - Muscular weakness [Recovering/Resolving]
  - Blood creatine phosphokinase increased [Unknown]
  - Product use in unapproved indication [Unknown]
